FAERS Safety Report 9016110 (Version 3)
Quarter: 2013Q2

REPORT INFORMATION
  Report Type: Spontaneous
  Country: US (occurrence: US)
  Receive Date: 20130116
  Receipt Date: 20130621
  Transmission Date: 20140414
  Serious: Yes (Other)
  Sender: FDA-Public Use
  Company Number: US-FRI-1000041598

PATIENT
  Age: 69 Year
  Sex: Male
  Weight: 76.6 kg

DRUGS (17)
  1. BYSTOLIC [Suspect]
     Indication: CORONARY ARTERY DISEASE
     Dosage: 5 MG
     Route: 048
     Dates: start: 20120726, end: 20120729
  2. LISINOPRIL [Concomitant]
     Indication: HYPERTENSION
     Dates: end: 2012
  3. JANUVIA [Concomitant]
     Indication: GLUCOSE TOLERANCE IMPAIRED
  4. CLOPIDOGREL [Concomitant]
  5. NEXIUM [Concomitant]
     Indication: GASTROOESOPHAGEAL REFLUX DISEASE
  6. SIMVASTATIN [Concomitant]
     Indication: BLOOD CHOLESTEROL INCREASED
  7. ALPRAZOLAM [Concomitant]
     Dosage: 2 MG THREE TIMES DAILY AS NEEDED
     Route: 048
  8. ASPIRIN [Concomitant]
     Dosage: 81 MG
     Route: 048
     Dates: start: 20101103
  9. CEPHALEXIN [Concomitant]
     Dosage: 500 MG EVERY 6 HOURS
     Route: 048
  10. CLOBETASOL [Concomitant]
     Dosage: 0.05 % TWICE DAILY
     Route: 061
  11. DAPSONE [Concomitant]
     Dosage: 50 MG
     Route: 048
  12. DOXEPIN [Concomitant]
     Dosage: 10 MG
     Route: 048
  13. FISH OIL [Concomitant]
     Dosage: 4000 MG
     Route: 048
     Dates: start: 20120829
  14. HYDROCODONE-ACETAMINOPHEN [Concomitant]
     Indication: PAIN
     Dosage: 7.5/500 EVERY 6 HOURS AS NEEDED
     Route: 048
  15. HYDROXYZINE [Concomitant]
     Dosage: 25 MG
     Route: 048
  16. MYCOPHENOLATE [Concomitant]
     Dosage: 1000 MG
     Route: 048
  17. TRIAMCINOLONE [Concomitant]
     Dosage: 0.1% TWICE DAILY
     Route: 061

REACTIONS (2)
  - Pemphigus [Recovering/Resolving]
  - Off label use [Recovered/Resolved]
